FAERS Safety Report 8549246-1 (Version None)
Quarter: 2012Q3

REPORT INFORMATION
  Report Type: 
  Country: None (occurrence: None)
  Receive Date: 20120730
  Receipt Date: 20120725
  Transmission Date: 20120928
  Serious: No
  Sender: FDA-Public Use
  Company Number: PHHY2011US58822

PATIENT
  Sex: Male

DRUGS (7)
  1. CIALIS [Concomitant]
  2. TASIGNA [Suspect]
     Indication: NEOPLASM MALIGNANT
     Dosage: 400 MG, BID
     Route: 048
     Dates: start: 20110618, end: 20110625
  3. OMEPRAZOLE [Concomitant]
  4. GABAPENTIN [Concomitant]
  5. TASIGNA [Suspect]
     Dates: end: 20120725
  6. EPIPEN [Concomitant]
  7. LASIX [Concomitant]

REACTIONS (7)
  - NAUSEA [None]
  - ARTHRALGIA [None]
  - COUGH [None]
  - INFLUENZA LIKE ILLNESS [None]
  - ABDOMINAL PAIN UPPER [None]
  - HEADACHE [None]
  - DIZZINESS [None]
